FAERS Safety Report 6611832-3 (Version None)
Quarter: 2010Q1

REPORT INFORMATION
  Report Type: 
  Country: None (occurrence: None)
  Receive Date: 20100303
  Receipt Date: 20100225
  Transmission Date: 20100710
  Serious: No
  Sender: FDA-Public Use
  Company Number: PE-ROCHE-687463

PATIENT
  Sex: Female
  Weight: 59 kg

DRUGS (2)
  1. ROACCUTAN [Suspect]
     Indication: ACNE
     Route: 048
     Dates: start: 20100111, end: 20100223
  2. ROACCUTAN [Suspect]
     Route: 048
     Dates: start: 20100222, end: 20100222

REACTIONS (2)
  - NO ADVERSE EVENT [None]
  - PREGNANCY [None]
